FAERS Safety Report 4602718-4 (Version None)
Quarter: 2005Q1

REPORT INFORMATION
  Report Type: 
  Country: None (occurrence: None)
  Receive Date: 20050307
  Receipt Date: 20050215
  Transmission Date: 20050727
  Serious: Yes (Death)
  Sender: FDA-Public Use
  Company Number: USA050291002

PATIENT
  Age: 78 Year
  Sex: Male

DRUGS (3)
  1. ZYPREXA [Suspect]
     Indication: DELIRIUM
     Dosage: 2.5 MG
  2. STEROIDS [Concomitant]
  3. ZITHROMAX [Concomitant]

REACTIONS (3)
  - CONDITION AGGRAVATED [None]
  - DEMENTIA [None]
  - PSYCHOTIC DISORDER [None]
